FAERS Safety Report 6172047-9 (Version None)
Quarter: 2009Q2

REPORT INFORMATION
  Report Type: 
  Country: None (occurrence: None)
  Receive Date: 20090429
  Receipt Date: 20090417
  Transmission Date: 20091009
  Serious: Yes (Life-Threatening, Hospitalization, Other)
  Sender: FDA-Public Use
  Company Number: US-PFIZER INC-2009180818

PATIENT
  Sex: Male
  Weight: 72 kg

DRUGS (6)
  1. MARAVIROC [Suspect]
     Dosage: 150 MG, 2X/DAY
     Route: 048
     Dates: start: 20081204, end: 20090317
  2. TRUVADA [Suspect]
     Dosage: 300/200 MG, 1X/DAY
     Route: 048
     Dates: start: 20051207
  3. PREZISTA [Suspect]
     Dosage: 600 MG, 2X/DAY
     Route: 048
     Dates: start: 20081204, end: 20090317
  4. RITONAVIR [Suspect]
     Dosage: 100 MG, 2X/DAY
     Route: 048
     Dates: start: 20081204, end: 20090317
  5. ZANTAC [Concomitant]
     Dosage: UNK
     Route: 048
     Dates: start: 20030703
  6. HYDROCHLOROTHIAZIDE [Concomitant]
     Dosage: UNK
     Route: 048
     Dates: start: 20081007, end: 20090228

REACTIONS (1)
  - ACUTE MYOCARDIAL INFARCTION [None]
